FAERS Safety Report 4762532-6 (Version None)
Quarter: 2005Q3

REPORT INFORMATION
  Report Type: 
  Country: None (occurrence: None)
  Receive Date: 20050826
  Receipt Date: 20041018
  Transmission Date: 20060218
  Serious: Yes (Other)
  Sender: FDA-Public Use
  Company Number: USA-2004-0017270

PATIENT
  Age: 42 Year
  Sex: Male

DRUGS (3)
  1. OXYCONTIN [Suspect]
     Dosage: 40 MG
  2. OXYCODONE HCL [Suspect]
     Dosage: 5 MG
  3. VALIUM [Suspect]
     Dosage: 10 MG

REACTIONS (1)
  - POLYSUBSTANCE ABUSE [None]
